FAERS Safety Report 20758816 (Version 1)
Quarter: 2022Q2

REPORT INFORMATION
  Report Type: Spontaneous
  Country: US (occurrence: US)
  Receive Date: 20220427
  Receipt Date: 20220427
  Transmission Date: 20220721
  Serious: No
  Sender: FDA-Public Use
  Company Number: US-BRISTOL-MYERS SQUIBB COMPANY-2022-022016

PATIENT
  Age: 71 Year
  Sex: Female

DRUGS (5)
  1. REVLIMID [Suspect]
     Active Substance: LENALIDOMIDE
     Indication: Plasma cell myeloma
     Dosage: DOSE: 20 MILLIGRAM, FREQ: TAKE 1 CAPSULE BY MOUTH EVERY DAY FOR 14 DAYS ON THEN FOLLOWED BY 7 DAYS O
     Route: 048
     Dates: start: 20220326
  2. ACETAMINOPHN [Concomitant]
     Indication: Product used for unknown indication
     Dosage: DOSE: 500 MILLIGRAM
  3. CITALOPRAM [Concomitant]
     Active Substance: CITALOPRAM HYDROBROMIDE
     Indication: Product used for unknown indication
     Dosage: DOSE: 10 MILLIGRAM
  4. METHOCARBAMOL [Concomitant]
     Active Substance: METHOCARBAMOL
     Indication: Product used for unknown indication
     Dosage: DOSE: 500 MILLIGRAM
  5. TRAMADOL HCL [Concomitant]
     Active Substance: TRAMADOL HYDROCHLORIDE
     Indication: Product used for unknown indication
     Dosage: DOSE: 50 MILLIGRAM

REACTIONS (3)
  - Nausea [Unknown]
  - Fatigue [Unknown]
  - Asthenia [Unknown]
